FAERS Safety Report 4468000-3 (Version None)
Quarter: 2004Q4

REPORT INFORMATION
  Report Type: 
  Country: None (occurrence: None)
  Receive Date: 20041004
  Receipt Date: 20040917
  Transmission Date: 20050328
  Serious: Yes (Other)
  Sender: FDA-Public Use
  Company Number: 2004-DE-03918DE

PATIENT
  Age: 60 Year
  Sex: Male

DRUGS (2)
  1. CLONIDINE [Suspect]
     Dosage: 0.3 MG (0.15 MG, 2X 0, 15 MG);
  2. BETA-BLOCKER (BETA BLOCKING AGENTS) (NR) (TOLIPROLOL-HCL, DIPYRIDAMOLE [Concomitant]

REACTIONS (1)
  - GRAND MAL CONVULSION [None]
